FAERS Safety Report 7605229-7 (Version None)
Quarter: 2011Q3

REPORT INFORMATION
  Report Type: 
  Country: None (occurrence: None)
  Receive Date: 20110705
  Receipt Date: 20110620
  Transmission Date: 20111222
  Serious: Yes (Life-Threatening, Hospitalization, Other)
  Sender: FDA-Public Use
  Company Number: 2011MA007772

PATIENT
  Age: 38 Year
  Sex: Male

DRUGS (3)
  1. CLINDAMYCIN [Concomitant]
  2. PRIMAQUINE [Concomitant]
  3. SULFATRIM PEDIATRIC [Suspect]
     Indication: PNEUMOCYSTIS JIROVECI INFECTION
     Dosage: 1920 MG;QID

REACTIONS (16)
  - CONJUNCTIVAL HYPERAEMIA [None]
  - COUGH [None]
  - PO2 INCREASED [None]
  - SEPTIC SHOCK [None]
  - ALANINE AMINOTRANSFERASE INCREASED [None]
  - BLOOD METHAEMOGLOBIN PRESENT [None]
  - NAUSEA [None]
  - LEUKOCYTOSIS [None]
  - LUNG INFILTRATION [None]
  - BLOOD ALKALINE PHOSPHATASE INCREASED [None]
  - DYSPNOEA [None]
  - RALES [None]
  - RASH ERYTHEMATOUS [None]
  - VOMITING [None]
  - CYANOSIS [None]
  - PO2 DECREASED [None]
